FAERS Safety Report 6032697-7 (Version None)
Quarter: 2009Q1

REPORT INFORMATION
  Report Type: 
  Country: None (occurrence: None)
  Receive Date: 20090107
  Receipt Date: 20090107
  Transmission Date: 20090719
  Serious: Yes (Hospitalization)
  Sender: FDA-Public Use
  Company Number: None

PATIENT
  Sex: Female
  Weight: 67 kg

DRUGS (9)
  1. TEMODAR [Suspect]
     Indication: GLIOBLASTOMA
     Dosage: 130MG DAILY PO
     Route: 048
     Dates: start: 20080225, end: 20080406
  2. AVASTIN [Suspect]
     Indication: GLIOBLASTOMA
     Dosage: 670MG Q 2 WKS IV
     Route: 042
     Dates: start: 20080225
  3. AVASTIN [Suspect]
     Indication: GLIOBLASTOMA
     Dosage: 670MG Q 2 WKS IV
     Route: 042
     Dates: start: 20080310
  4. AVASTIN [Suspect]
     Indication: GLIOBLASTOMA
     Dosage: 670MG Q 2 WKS IV
     Route: 042
     Dates: start: 20080324
  5. AVASTIN [Suspect]
     Indication: GLIOBLASTOMA
     Dosage: 670MG Q 2 WKS IV
     Route: 042
     Dates: start: 20080407
  6. KEPPRA [Concomitant]
  7. PRILOSEC [Concomitant]
  8. OXYCONTIN [Concomitant]
  9. ACETAMINOPHEN [Concomitant]

REACTIONS (2)
  - ARTHRITIS BACTERIAL [None]
  - STAPHYLOCOCCAL BACTERAEMIA [None]
